FAERS Safety Report 4658702-8 (Version None)
Quarter: 2005Q2

REPORT INFORMATION
  Report Type: 
  Country: None (occurrence: None)
  Receive Date: 20050510
  Receipt Date: 20050510
  Transmission Date: 20051028
  Serious: Yes (Hospitalization)
  Sender: FDA-Public Use
  Company Number: None

PATIENT
  Sex: Male

DRUGS (1)
  1. HIBICLENS [Suspect]
     Indication: SKIN DISORDER
     Dosage: TOPICAL, 1 DOSE
     Route: 061
     Dates: start: 20050324

REACTIONS (9)
  - ARTHRALGIA [None]
  - HYPOAESTHESIA [None]
  - INCORRECT ROUTE OF DRUG ADMINISTRATION [None]
  - OEDEMA PERIPHERAL [None]
  - OFF LABEL USE [None]
  - PAIN [None]
  - PAIN IN EXTREMITY [None]
  - SKIN BURNING SENSATION [None]
  - WOUND COMPLICATION [None]
